FAERS Safety Report 6300430-7 (Version None)
Quarter: 2009Q3

REPORT INFORMATION
  Report Type: 
  Country: None (occurrence: None)
  Receive Date: 20090806
  Receipt Date: 20080923
  Transmission Date: 20100115
  Serious: No
  Sender: FDA-Public Use
  Company Number: US-ABBOTT-08P-163-0478098-00

PATIENT
  Sex: Male
  Weight: 63.56 kg

DRUGS (8)
  1. DEPAKOTE ER [Suspect]
     Indication: EPILEPSY
     Route: 048
  2. DEPAKOTE ER [Suspect]
     Route: 048
  3. DEPAKOTE ER [Suspect]
     Route: 048
  4. ONDANSETRON [Concomitant]
     Indication: NAUSEA
     Route: 048
  5. CARBAMAZEPINE [Concomitant]
     Indication: EPILEPSY
     Route: 048
  6. PHENYTOIN [Concomitant]
     Indication: EPILEPSY
     Route: 048
  7. DOMTERDONE [Concomitant]
     Indication: EPILEPSY
     Route: 048
  8. LAMOTRIGINE [Concomitant]
     Indication: EPILEPSY
     Route: 048

REACTIONS (5)
  - ABDOMINAL PAIN [None]
  - CONVULSION [None]
  - DIARRHOEA [None]
  - GASTRIC DISORDER [None]
  - GASTROOESOPHAGEAL REFLUX DISEASE [None]
